FAERS Safety Report 12192964 (Version 1)
Quarter: 2016Q1

REPORT INFORMATION
  Report Type: Spontaneous
  Country: None (occurrence: US)
  Receive Date: 20160318
  Receipt Date: 20160318
  Transmission Date: 20160526
  Serious: No
  Sender: FDA-Public Use
  Company Number: US-MEDAC PHARMA, INC.-1049334

PATIENT
  Age: 76 Year
  Sex: Female

DRUGS (1)
  1. RASUVO [Suspect]
     Active Substance: METHOTREXATE SODIUM
     Indication: RHEUMATOID ARTHRITIS
     Dates: start: 201602

REACTIONS (7)
  - Insomnia [Unknown]
  - Muscle spasms [Unknown]
  - Nausea [Unknown]
  - Malaise [Unknown]
  - Back pain [Unknown]
  - Headache [Unknown]
  - Asthenia [Unknown]
